FAERS Safety Report 6900691-7 (Version None)
Quarter: 2010Q3

REPORT INFORMATION
  Report Type: 
  Country: None (occurrence: None)
  Receive Date: 20100803
  Receipt Date: 20100802
  Transmission Date: 20110219
  Serious: Yes (Hospitalization)
  Sender: FDA-Public Use
  Company Number: GXKR2010DE08538

PATIENT
  Sex: Female
  Weight: 75 kg

DRUGS (2)
  1. ALLOPURINOL [Suspect]
     Indication: HYPERURICAEMIA
     Dosage: 100 MG, QD
     Route: 048
     Dates: end: 20100608
  2. EZETIMIBE/SIMVASTATIN [Suspect]
     Indication: HYPERLIPIDAEMIA
     Dosage: 1 DF/DAILY
     Route: 048
     Dates: end: 20100608

REACTIONS (2)
  - HEPATIC ENCEPHALOPATHY [None]
  - HEPATIC NECROSIS [None]
